FAERS Safety Report 6232873-4 (Version None)
Quarter: 2009Q2

REPORT INFORMATION
  Report Type: 
  Country: None (occurrence: None)
  Receive Date: 20090617
  Receipt Date: 20090319
  Transmission Date: 20091009
  Serious: No
  Sender: FDA-Public Use
  Company Number: US-ASTRAZENECA-2009UW07136

PATIENT
  Age: 49 Year
  Sex: Female

DRUGS (3)
  1. FASLODEX [Suspect]
     Indication: BREAST CANCER
     Route: 030
     Dates: start: 20060101
  2. CLONIDINE [Concomitant]
  3. PAROXETINE HCL [Concomitant]

REACTIONS (5)
  - BACK PAIN [None]
  - BONE PAIN [None]
  - FIBROMYALGIA [None]
  - MYALGIA [None]
  - OROPHARYNGEAL PAIN [None]
